FAERS Safety Report 18340376 (Version 1)
Quarter: 2020Q4

REPORT INFORMATION
  Report Type: Spontaneous
  Country: GB (occurrence: GB)
  Receive Date: 20201002
  Receipt Date: 20201002
  Transmission Date: 20210113
  Serious: Yes (Congenital Anomaly, Other)
  Sender: FDA-Public Use
  Company Number: GB-PFIZER INC-2020378563

PATIENT
  Sex: Female

DRUGS (2)
  1. FOLIC ACID. [Concomitant]
     Active Substance: FOLIC ACID
     Dosage: UNK
  2. SERTRALINE HCL [Suspect]
     Active Substance: SERTRALINE HYDROCHLORIDE
     Indication: PREMENSTRUAL DYSPHORIC DISORDER
     Dosage: 50 MG, 1X/DAY
     Route: 064

REACTIONS (2)
  - Tracheo-oesophageal fistula [Recovering/Resolving]
  - Foetal exposure during pregnancy [Unknown]
